FAERS Safety Report 16863170 (Version 1)
Quarter: 2019Q3

REPORT INFORMATION
  Report Type: Spontaneous
  Country: US (occurrence: US)
  Receive Date: 20190927
  Receipt Date: 20190927
  Transmission Date: 20191005
  Serious: Yes (Life-Threatening)
  Sender: FDA-Public Use
  Company Number: US-FRESENIUS KABI-FK201910474

PATIENT
  Age: 71 Year
  Sex: Male

DRUGS (2)
  1. BUPIVACAINE (MANUFACTURER UNKNOWN) [Suspect]
     Active Substance: BUPIVACAINE
     Indication: NERVE BLOCK
     Dosage: 6CC OF A 1:1 MIXTURE OF 0.75 PERCENT BUPIVACAINE AND 2.0 PERCENT LIDOCAINE
     Route: 056
  2. LIDOCAINE 2% (MANUFACTURER UNKNOWN) [Suspect]
     Active Substance: LIDOCAINE
     Indication: NERVE BLOCK
     Dosage: 6CC OF A 1:1 MIXTURE OF 0.75 PERCENT BUPIVACAINE AND 2.0 PERCENT LIDOCAINE
     Route: 056

REACTIONS (1)
  - Amaurosis [Recovered/Resolved]
